FAERS Safety Report 8968374 (Version 1)
Quarter: 2012Q4

REPORT INFORMATION
  Report Type: 
  Country: US (occurrence: US)
  Receive Date: 20121218
  Receipt Date: 20121218
  Transmission Date: 20130627
  Serious: No
  Sender: FDA-Public Use
  Company Number: US-BRISTOL-MYERS SQUIBB COMPANY-16764029

PATIENT
  Age: 57 Year
  Sex: Female

DRUGS (4)
  1. ABILIFY [Suspect]
     Indication: MAJOR DEPRESSION
     Dosage: Abilify 2mg,dse incre 5mg,dose decr:7.5mg,incre Abilify dose:1/2-15mg tab(7.5mg),dose increa:15mg.
  2. VENLAFAXINE HYDROCHLORIDE [Suspect]
  3. LORAZEPAM [Concomitant]
  4. AMBIEN [Concomitant]
     Indication: INSOMNIA
     Dosage: QHS

REACTIONS (2)
  - Tardive dyskinesia [Not Recovered/Not Resolved]
  - Depression [Unknown]
